FAERS Safety Report 20227571 (Version 15)
Quarter: 2024Q3

REPORT INFORMATION
  Report Type: Report from Study
  Country: US (occurrence: US)
  Receive Date: 20211224
  Receipt Date: 20240925
  Transmission Date: 20241016
  Serious: No
  Sender: GLAXOSMITHKLINE
  Company Number: US-GLAXOSMITHKLINE-US2021AMR258382

PATIENT
  Age: 71 Year
  Sex: Female

DRUGS (14)
  1. NIRAPARIB [Suspect]
     Active Substance: NIRAPARIB
     Indication: Ovarian cancer
     Dosage: 200 MG, QD
     Dates: start: 20211212
  2. NIRAPARIB [Suspect]
     Active Substance: NIRAPARIB
     Dosage: 100 MG, QD
     Dates: start: 20211225, end: 20220101
  3. NIRAPARIB [Suspect]
     Active Substance: NIRAPARIB
     Dosage: 200 MG, QD
     Dates: start: 20220102, end: 20220204
  4. NIRAPARIB [Suspect]
     Active Substance: NIRAPARIB
     Dosage: 100 MG, QD
     Dates: start: 20220214, end: 20220309
  5. NIRAPARIB [Suspect]
     Active Substance: NIRAPARIB
     Dosage: 200 MG, QD
     Dates: start: 20220310, end: 20220406
  6. NIRAPARIB [Suspect]
     Active Substance: NIRAPARIB
     Dosage: 100 MG, QD
     Dates: start: 20220423
  7. NIRAPARIB [Suspect]
     Active Substance: NIRAPARIB
     Dosage: 200 MG, QD
     Dates: start: 20220609, end: 20220804
  8. NIRAPARIB [Suspect]
     Active Substance: NIRAPARIB
     Dosage: UNK UNK, Z (100MG EVERY OTHER DAY, ALTERNATING WITH 200MG EVERY OTHER DAY)
     Dates: start: 20220812, end: 202209
  9. NIRAPARIB [Suspect]
     Active Substance: NIRAPARIB
     Dosage: 200 MG, QD
     Dates: start: 20220906
  10. NIRAPARIB [Suspect]
     Active Substance: NIRAPARIB
     Dosage: 100 MG, QD
     Dates: start: 20221011
  11. NIRAPARIB [Suspect]
     Active Substance: NIRAPARIB
     Dosage: UNK UNK, Z (200 MG EVERY OTHER DAY, ALTERNATING WITH 100 MG ON OPPOSITE DAYS)
  12. NIRAPARIB [Suspect]
     Active Substance: NIRAPARIB
     Dosage: UNK UNK, Z (200 MG CAPSULE 2 DAY IN A ROW THEN 100 MG ON 3RD DAY)
     Route: 048
  13. NIRAPARIB [Suspect]
     Active Substance: NIRAPARIB
     Dosage: UNK UNK, Z (2 CAPSULE BY MOUTH 1 TIME DAY FOR 2 DAY 1 CAPSULE1 TIME DAY ON 3RD DAY REPEAT)
     Route: 048
  14. METOPROLOL [Suspect]
     Active Substance: METOPROLOL
     Indication: Product used for unknown indication
     Dosage: UNK

REACTIONS (18)
  - Insomnia [Recovered/Resolved]
  - Nausea [Recovering/Resolving]
  - Diarrhoea [Recovering/Resolving]
  - Fatigue [Not Recovered/Not Resolved]
  - Decreased activity [Not Recovered/Not Resolved]
  - Heart rate increased [Not Recovered/Not Resolved]
  - Blood pressure increased [Recovered/Resolved]
  - Anaemia [Not Recovered/Not Resolved]
  - Heart rate irregular [Not Recovered/Not Resolved]
  - Coronavirus infection [Recovered/Resolved]
  - Coronavirus test positive [Recovered/Resolved]
  - Hypertension [Not Recovered/Not Resolved]
  - Platelet count decreased [Recovered/Resolved]
  - Haemoglobin decreased [Recovered/Resolved]
  - Red blood cell count decreased [Recovered/Resolved]
  - Nasopharyngitis [Not Recovered/Not Resolved]
  - Off label use [Not Recovered/Not Resolved]
  - Product dose omission in error [Unknown]

NARRATIVE: CASE EVENT DATE: 20211201
